FAERS Safety Report 6741724-0 (Version None)
Quarter: 2010Q2

REPORT INFORMATION
  Report Type: 
  Country: None (occurrence: None)
  Receive Date: 20100526
  Receipt Date: 20100513
  Transmission Date: 20101027
  Serious: Yes (Hospitalization)
  Sender: FDA-Public Use
  Company Number: US-ELI_LILLY_AND_COMPANY-US201005003968

PATIENT
  Sex: Male

DRUGS (9)
  1. CYMBALTA [Suspect]
     Indication: DRUG DETOXIFICATION
     Dosage: 60 MG, UNK
     Dates: start: 20100323, end: 20100504
  2. CYMBALTA [Suspect]
     Dosage: 30 MG, UNK
     Dates: start: 20100505, end: 20100511
  3. LORTAB [Concomitant]
  4. LISINOPRIL [Concomitant]
     Dosage: 1 D/F, DAILY (1/D)
  5. ATENOLOL [Concomitant]
     Dosage: 25 MG, DAILY (1/D)
  6. ATENOLOL [Concomitant]
     Dosage: 50 MG, DAILY (1/D)
  7. CLONAZEPAM [Concomitant]
     Dosage: 1 MG, UNK
  8. CLONAZEPAM [Concomitant]
     Dosage: 2 MG, UNK
  9. AMITRIPTYLINE [Concomitant]
     Dosage: 25 MG, DAILY (1/D)

REACTIONS (10)
  - ABNORMAL BEHAVIOUR [None]
  - AGITATION [None]
  - ANXIETY [None]
  - DETOXIFICATION [None]
  - DISTURBANCE IN ATTENTION [None]
  - DRUG WITHDRAWAL SYNDROME [None]
  - FEELING JITTERY [None]
  - OFF LABEL USE [None]
  - THINKING ABNORMAL [None]
  - TREMOR [None]
